FAERS Safety Report 11189665 (Version 4)
Quarter: 2017Q3

REPORT INFORMATION
  Report Type: Spontaneous
  Country: US (occurrence: US)
  Receive Date: 20150615
  Receipt Date: 20170926
  Transmission Date: 20171127
  Serious: Yes (Hospitalization)
  Sender: FDA-Public Use
  Company Number: US-DSJP-DSU-2015-107733

PATIENT

DRUGS (1)
  1. BENICAR [Suspect]
     Active Substance: OLMESARTAN MEDOXOMIL
     Indication: HYPERTENSION
     Dosage: 40 MG, QD
     Route: 048
     Dates: start: 2008, end: 2010

REACTIONS (15)
  - Acute kidney injury [Recovered/Resolved]
  - Hiatus hernia [Unknown]
  - Asthenia [Unknown]
  - Ascites [Unknown]
  - Lymphocytosis [Unknown]
  - Transaminases increased [Unknown]
  - Malabsorption [Unknown]
  - Cholelithiasis [Unknown]
  - Metabolic acidosis [Unknown]
  - Gastritis [Unknown]
  - Irritable bowel syndrome [Unknown]
  - Coeliac disease [Not Recovered/Not Resolved]
  - Colitis [Unknown]
  - Enteritis [Unknown]
  - Gastrointestinal haemorrhage [Unknown]

NARRATIVE: CASE EVENT DATE: 2010
